FAERS Safety Report 8389902-1 (Version None)
Quarter: 2012Q2

REPORT INFORMATION
  Report Type: 
  Country: None (occurrence: None)
  Receive Date: 20120522
  Receipt Date: 20120509
  Transmission Date: 20120825
  Serious: Yes (Death, Other)
  Sender: FDA-Public Use
  Company Number: ENTC2012-0200

PATIENT
  Age: 83 Year
  Sex: Male

DRUGS (4)
  1. MODURETIC 5-50 [Concomitant]
  2. LIPITOR [Concomitant]
  3. STALEVO 100 [Suspect]
     Indication: PARKINSON'S DISEASE
     Dosage: 1 DF ONCE A DAY, 50/12.5/200 MG
     Dates: start: 20120401
  4. LEVOTIROXINA [Concomitant]

REACTIONS (3)
  - DIET REFUSAL [None]
  - RESPIRATORY FAILURE [None]
  - CARDIAC FAILURE [None]
